FAERS Safety Report 8200494-X (Version None)
Quarter: 2012Q1

REPORT INFORMATION
  Report Type: 
  Country: None (occurrence: None)
  Receive Date: 20120308
  Receipt Date: 20120301
  Transmission Date: 20120608
  Serious: Yes (Other)
  Sender: FDA-Public Use
  Company Number: GER/GER/12/0023281

PATIENT

DRUGS (3)
  1. METFORMIN HCL [Suspect]
     Indication: POLYCYSTIC OVARIES
     Dosage: 1000 MG, 2 IN 1 D, ORAL
     Route: 048
     Dates: start: 20100803, end: 20110111
  2. DEKRISTOL (COLECALCIFEROL) [Concomitant]
  3. 1-THYROXIN (LEVOTHYROXINE SODIUM) [Concomitant]

REACTIONS (3)
  - MATERNAL EXPOSURE DURING PREGNANCY [None]
  - PREGNANCY [None]
  - GESTATIONAL DIABETES [None]
